FAERS Safety Report 19294971 (Version 1)
Quarter: 2021Q2

REPORT INFORMATION
  Report Type: Spontaneous
  Country: GB (occurrence: GB)
  Receive Date: 20210524
  Receipt Date: 20210524
  Transmission Date: 20210717
  Serious: No
  Sender: FDA-Public Use
  Company Number: GB-SIEMENS HEALTHCARE LIMITED-PET-000109-2020

PATIENT

DRUGS (1)
  1. FLUORODEOXYGLUCOSE 18F [Suspect]
     Active Substance: FLUDEOXYGLUCOSE F-18
     Indication: PRODUCT USED FOR UNKNOWN INDICATION
     Dosage: UNK
     Route: 065
     Dates: start: 20200711

REACTIONS (3)
  - Vomiting [Unknown]
  - Dyspnoea [Not Recovered/Not Resolved]
  - Fatigue [Unknown]
